FAERS Safety Report 15402533 (Version 1)
Quarter: 2018Q3

REPORT INFORMATION
  Report Type: Spontaneous
  Country: US (occurrence: US)
  Receive Date: 20180916
  Receipt Date: 20180916
  Transmission Date: 20181010
  Serious: Yes (Life-Threatening, Disabling, Other)
  Sender: FDA-Public Use
  Company Number: None

PATIENT
  Age: 46 Year
  Sex: Female
  Weight: 46.8 kg

DRUGS (1)
  1. ACETAMINOPHEN. [Suspect]
     Active Substance: ACETAMINOPHEN
     Indication: PAIN
     Dosage: ?          QUANTITY:30 TABLET(S);?
     Route: 048
     Dates: start: 20180915, end: 20180916

REACTIONS (8)
  - Rash [None]
  - Herpes zoster [None]
  - Product quality issue [None]
  - Pruritus [None]
  - Anger [None]
  - Swelling [None]
  - Cystitis [None]
  - Kidney infection [None]

NARRATIVE: CASE EVENT DATE: 20180915
